FAERS Safety Report 9449779 (Version 1)
Quarter: 2013Q3

REPORT INFORMATION
  Report Type: Spontaneous
  Country: FR (occurrence: FR)
  Receive Date: 20130809
  Receipt Date: 20130809
  Transmission Date: 20140515
  Serious: Yes (Other)
  Sender: FDA-Public Use
  Company Number: FR-SANOFI-AVENTIS-2013SA078910

PATIENT
  Age: 65 Year
  Sex: Female
  Weight: 88 kg

DRUGS (14)
  1. RIFAMPICIN [Suspect]
     Indication: TUBERCULOSIS
     Route: 048
  2. CYCLOSPORINE [Interacting]
     Indication: IMMUNOSUPPRESSION
     Route: 048
  3. CYCLOSPORINE [Interacting]
     Indication: IMMUNOSUPPRESSION
     Route: 048
  4. CYCLOSPORINE [Interacting]
     Indication: IMMUNOSUPPRESSION
     Route: 042
  5. FLUINDIONE [Interacting]
     Indication: ANTICOAGULANT THERAPY
     Route: 048
  6. PREDNISONE [Concomitant]
     Indication: IMMUNOSUPPRESSION
  7. MYCOPHENOLIC ACID [Concomitant]
     Indication: IMMUNOSUPPRESSION
  8. SIROLIMUS [Concomitant]
     Indication: IMMUNOSUPPRESSION
  9. ANTIBIOTICS [Concomitant]
  10. ISONIAZID [Concomitant]
     Indication: TUBERCULOSIS
  11. ETHAMBUTOL [Concomitant]
     Indication: TUBERCULOSIS
  12. PYRAZINAMIDE [Concomitant]
     Indication: TUBERCULOSIS
  13. FRESUBIN [Concomitant]
     Dosage: VIA NASOGASTRIC TUBE
     Route: 048
  14. UNFRACTIONATED HEPARIN [Concomitant]
     Indication: ANTICOAGULANT THERAPY

REACTIONS (6)
  - Haemorrhage [Recovered/Resolved]
  - Drug interaction [Unknown]
  - International normalised ratio increased [Recovered/Resolved]
  - Coagulation factor V level increased [Recovered/Resolved]
  - Haemoptysis [Recovered/Resolved]
  - Drug level decreased [Recovered/Resolved]
